FAERS Safety Report 16262454 (Version 1)
Quarter: 2019Q2

REPORT INFORMATION
  Report Type: Spontaneous
  Country: CN (occurrence: CN)
  Receive Date: 20190501
  Receipt Date: 20190501
  Transmission Date: 20190711
  Serious: Yes (Other)
  Sender: FDA-Public Use
  Company Number: CN-BAXTER-2019BAX008526

PATIENT
  Age: 43 Year
  Sex: Female
  Weight: 65 kg

DRUGS (12)
  1. TAXOTERE [Suspect]
     Active Substance: DOCETAXEL
     Dosage: DOCETAXEL INJECTION (TAXOTERE) + NS, DOSE RE-INTRODUCED
     Route: 041
  2. ENDOXAN [Suspect]
     Active Substance: CYCLOPHOSPHAMIDE
     Dosage: 4TH CHEMOTHERAPY, CYCLOPHOSPHAMIDE FOR INJECTION (ENDOXAN CTX) 950 MG +NS 50 ML
     Route: 041
     Dates: start: 20190311, end: 20190311
  3. 0.9% SODIUM CHLORIDE INJECTION [Suspect]
     Active Substance: SODIUM CHLORIDE
     Dosage: DOCETAXEL INJECTION (TAXOTERE) + NS, RECEIVED 1ST TO 3RD CHEMOTHERAPY
     Route: 041
  4. TAXOTERE [Suspect]
     Active Substance: DOCETAXEL
     Dosage: DOCETAXEL INJECTION (TAXOTERE) 125 MG + NS 250 ML, 4TH CHEMOTHERAPY
     Route: 041
     Dates: start: 20190311, end: 20190311
  5. ENDOXAN [Suspect]
     Active Substance: CYCLOPHOSPHAMIDE
     Indication: BREAST CANCER FEMALE
     Dosage: CYCLOPHOSPHAMIDE FOR INJECTION (ENDOXAN CTX) +NS, RECEIVED 1ST TO 3RD CHEMOTHERAPY
     Route: 041
  6. TAXOTERE [Suspect]
     Active Substance: DOCETAXEL
     Indication: BREAST CANCER FEMALE
     Dosage: RECEIVED 1ST TO 3RD CHEMOTHERAPY, DOCETAXEL INJECTION (TAXOTERE) + NS
     Route: 041
  7. 0.9% SODIUM CHLORIDE INJECTION [Suspect]
     Active Substance: SODIUM CHLORIDE
     Dosage: DOCETAXEL INJECTION (TAXOTERE) 125 MG + NS 250 ML, 4TH CHEMOTHERAPY
     Route: 041
     Dates: start: 20190311, end: 20190311
  8. 0.9% SODIUM CHLORIDE INJECTION [Suspect]
     Active Substance: SODIUM CHLORIDE
     Dosage: CYCLOPHOSPHAMIDE FOR INJECTION (ENDOXAN CTX) + NS IVGTT, DOSE RE-INTRODUCED
     Route: 041
  9. 0.9% SODIUM CHLORIDE INJECTION [Suspect]
     Active Substance: SODIUM CHLORIDE
     Dosage: DOCETAXEL INJECTION (TAXOTERE) + NS, DOSE RE-INTRODUCED
     Route: 041
  10. ENDOXAN [Suspect]
     Active Substance: CYCLOPHOSPHAMIDE
     Dosage: CYCLOPHOSPHAMIDE FOR INJECTION (ENDOXAN CTX) +NS IVGTT, DOSE RE-INTRODUCED
     Route: 041
  11. 0.9% SODIUM CHLORIDE INJECTION [Suspect]
     Active Substance: SODIUM CHLORIDE
     Indication: MEDICATION DILUTION
     Dosage: CYCLOPHOSPHAMIDE FOR INJECTION (ENDOXAN CTX) +NS, RECEIVED 1ST TO 3RD CHEMOTHERAPY
     Route: 041
  12. 0.9% SODIUM CHLORIDE INJECTION [Suspect]
     Active Substance: SODIUM CHLORIDE
     Dosage: 4TH CHEMOTHERAPY, CYCLOPHOSPHAMIDE FOR INJECTION (ENDOXAN CTX) 950 MG +NS 50 ML IVGTT
     Route: 041
     Dates: start: 20190311, end: 20190311

REACTIONS (1)
  - Agranulocytosis [Recovered/Resolved]

NARRATIVE: CASE EVENT DATE: 20190319
